FAERS Safety Report 16139970 (Version 1)
Quarter: 2019Q2

REPORT INFORMATION
  Report Type: Spontaneous
  Country: DE (occurrence: DE)
  Receive Date: 20190401
  Receipt Date: 20190401
  Transmission Date: 20190711
  Serious: Yes (Hospitalization, Other)
  Sender: FDA-Public Use
  Company Number: DE-BAYER-2019-041749

PATIENT
  Age: 45 Year
  Sex: Female
  Weight: 64 kg

DRUGS (11)
  1. MIRENA [Suspect]
     Active Substance: LEVONORGESTREL
     Indication: MENORRHAGIA
  2. MIRENA [Suspect]
     Active Substance: LEVONORGESTREL
     Dosage: UNK
  3. LEVOFLOXACIN. [Concomitant]
     Active Substance: LEVOFLOXACIN
     Indication: ABDOMINAL PAIN
     Dosage: UNK
     Dates: start: 201204
  4. ASCORBIC ACID. [Concomitant]
     Active Substance: ASCORBIC ACID
     Indication: PROPHYLAXIS
  5. CEFPODOXIME [Concomitant]
     Active Substance: CEFPODOXIME
     Indication: ABDOMINAL PAIN
     Dosage: UNK
     Dates: start: 201204, end: 2012
  6. FOSFOMYCIN [Concomitant]
     Active Substance: FOSFOMYCIN
     Indication: CYSTITIS
     Dosage: 3 G, ONCE
     Dates: start: 20170113, end: 20170113
  7. NITROFURANTOIN. [Concomitant]
     Active Substance: NITROFURANTOIN
     Indication: CYSTITIS NONINFECTIVE
     Dosage: UNK
     Dates: start: 201704
  8. MIRENA [Suspect]
     Active Substance: LEVONORGESTREL
     Indication: CONTRACEPTION
     Dosage: 20 MCG/24HR, CONT
     Route: 015
     Dates: start: 201009, end: 201706
  9. NITROXOLIN FORTE [Concomitant]
     Indication: CYSTITIS NONINFECTIVE
     Dosage: UNK
     Dates: start: 201704
  10. NITROFURANTOIN. [Concomitant]
     Active Substance: NITROFURANTOIN
     Indication: PROPHYLAXIS
  11. ASCORBIC ACID. [Concomitant]
     Active Substance: ASCORBIC ACID
     Indication: CYSTITIS NONINFECTIVE
     Dosage: UNK
     Dates: start: 201704

REACTIONS (4)
  - Abdominal pain lower [Recovered/Resolved]
  - Crohn^s disease [Recovered/Resolved]
  - Device use issue [None]
  - Amenorrhoea [None]

NARRATIVE: CASE EVENT DATE: 201009
